FAERS Safety Report 5339325-4 (Version None)
Quarter: 2007Q2

REPORT INFORMATION
  Report Type: 
  Country: None (occurrence: None)
  Receive Date: 20070322
  Receipt Date: 20070123
  Transmission Date: 20071010
  Serious: Yes (Other)
  Sender: FDA-Public Use
  Company Number: 200614559BCC

PATIENT
  Age: 78 Year
  Sex: Female
  Weight: 54.4316 kg

DRUGS (5)
  1. ALEVE (CAPLET) [Suspect]
     Indication: BACK PAIN
     Dosage: 220 MG, QD, ORAL
     Route: 048
     Dates: start: 20061030, end: 20061103
  2. ALEVE (CAPLET) [Suspect]
     Indication: ROAD TRAFFIC ACCIDENT
     Dosage: 220 MG, QD, ORAL
     Route: 048
     Dates: start: 20061030, end: 20061103
  3. DIOVAN [Concomitant]
  4. LOZOL [Concomitant]
  5. EYE DROPS [Concomitant]

REACTIONS (2)
  - FEELING ABNORMAL [None]
  - VISUAL DISTURBANCE [None]
